FAERS Safety Report 22526212 (Version 1)
Quarter: 2023Q2

REPORT INFORMATION
  Report Type: Spontaneous
  Country: US (occurrence: US)
  Receive Date: 20230606
  Receipt Date: 20230606
  Transmission Date: 20230722
  Serious: Yes (Other)
  Sender: FDA-Public Use
  Company Number: US-BAXTER-2023BAX023164

PATIENT
  Age: 59 Year
  Sex: Female

DRUGS (1)
  1. NOREPINEPHRINE BITARTRATE [Suspect]
     Active Substance: NOREPINEPHRINE BITARTRATE
     Indication: Blood pressure management
     Dosage: APPLIED TOPICALLY ON FINGERS AND TOES
     Route: 061
     Dates: start: 20230528

REACTIONS (7)
  - Skin necrosis [Not Recovered/Not Resolved]
  - Skin discolouration [Not Recovered/Not Resolved]
  - Cold sweat [Unknown]
  - Livedo reticularis [Unknown]
  - Swelling [Unknown]
  - Dehydration [Not Recovered/Not Resolved]
  - Dry skin [Not Recovered/Not Resolved]

NARRATIVE: CASE EVENT DATE: 20230528
